FAERS Safety Report 5688252-1 (Version None)
Quarter: 2008Q1

REPORT INFORMATION
  Report Type: 
  Country: None (occurrence: None)
  Receive Date: 20080331
  Receipt Date: 20080320
  Transmission Date: 20080703
  Serious: Yes (Hospitalization)
  Sender: FDA-Public Use
  Company Number: US-JNJFOC-20071107386

PATIENT
  Sex: Female
  Weight: 147.87 kg

DRUGS (35)
  1. REMICADE [Suspect]
     Route: 042
  2. REMICADE [Suspect]
     Route: 042
  3. REMICADE [Suspect]
     Route: 042
  4. REMICADE [Suspect]
     Indication: RHEUMATOID ARTHRITIS
     Route: 042
  5. NIFEREX [Concomitant]
     Indication: ANAEMIA
     Route: 048
  6. NORVASC [Concomitant]
     Indication: HYPERTENSION
     Route: 048
  7. PRILOSEC [Concomitant]
     Indication: GASTROOESOPHAGEAL REFLUX DISEASE
     Route: 048
  8. REGLAN [Concomitant]
     Route: 048
  9. NAMENDA [Concomitant]
     Indication: AMNESIA
     Route: 048
  10. ZAROXOLYN [Concomitant]
     Indication: DIURETIC THERAPY
     Route: 048
  11. CLARITIN [Concomitant]
     Indication: MULTIPLE ALLERGIES
     Route: 048
  12. QUINAPRIL HCL [Concomitant]
     Indication: HYPERTENSION
     Route: 048
  13. METHOTREXATE [Concomitant]
     Indication: RHEUMATOID ARTHRITIS
  14. TYLENOL (CAPLET) [Concomitant]
     Indication: PREMEDICATION
     Route: 048
  15. PREDNISONE TAB [Concomitant]
     Indication: PREMEDICATION
     Route: 048
  16. PROVIGIL [Concomitant]
     Route: 048
  17. REMERON [Concomitant]
     Route: 048
  18. ISOSORBIDE DINITRATE [Concomitant]
     Route: 048
  19. MOBIC [Concomitant]
     Route: 048
  20. LYRICA [Concomitant]
     Route: 048
  21. EXELON [Concomitant]
     Route: 048
  22. ASPIRIN [Concomitant]
     Route: 048
  23. NIFEREX [Concomitant]
     Route: 048
  24. LASIX [Concomitant]
     Route: 048
  25. FOLTX [Concomitant]
     Route: 048
  26. XANAX [Concomitant]
     Route: 048
  27. PLAVIX [Concomitant]
     Route: 048
  28. AMLODIPINE [Concomitant]
     Route: 048
  29. SYNTHROID [Concomitant]
     Route: 048
  30. MAGNESIUM OXIDE [Concomitant]
     Route: 048
  31. HUMALOG [Concomitant]
  32. ACCUPRIL [Concomitant]
  33. IMDUR [Concomitant]
  34. LEVOXYL [Concomitant]
  35. ALPRAZOLAM [Concomitant]

REACTIONS (6)
  - ANAEMIA [None]
  - COR PULMONALE [None]
  - COUGH [None]
  - DIABETES MELLITUS INADEQUATE CONTROL [None]
  - HYPOVENTILATION [None]
  - UNEVALUABLE EVENT [None]
